FAERS Safety Report 5049757-X (Version None)
Quarter: 2006Q3

REPORT INFORMATION
  Report Type: 
  Country: None (occurrence: None)
  Receive Date: 20060707
  Receipt Date: 20060622
  Transmission Date: 20061208
  Serious: Yes (Other)
  Sender: FDA-Public Use
  Company Number: US-2006-016501

PATIENT
  Age: 43 Year
  Sex: Female

DRUGS (1)
  1. BETASERON [Suspect]
     Indication: MULTIPLE SCLEROSIS
     Dosage: 8 MIU, EVERY 2D, SUBCUTANEOUS
     Route: 058
     Dates: start: 19980302

REACTIONS (5)
  - INJECTION SITE MASS [None]
  - INJECTION SITE PAIN [None]
  - SURGERY [None]
  - WALKING AID USER [None]
  - WRONG TECHNIQUE IN DRUG USAGE PROCESS [None]
